FAERS Safety Report 25927408 (Version 2)
Quarter: 2025Q4

REPORT INFORMATION
  Report Type: Spontaneous
  Country: EU (occurrence: EU)
  Receive Date: 20251015
  Receipt Date: 20251105
  Transmission Date: 20260117
  Serious: Yes (Other)
  Sender: TEVA
  Company Number: EU-TEVA-VS-3380139

PATIENT
  Age: 50 Year
  Sex: Female

DRUGS (7)
  1. METHYLPREDNISOLONE [Suspect]
     Active Substance: METHYLPREDNISOLONE
     Indication: Eosinophilic granulomatosis with polyangiitis
     Dosage: FOR 3 CONSECUTIVE DAYS
     Route: 065
     Dates: start: 2023, end: 2023
  2. METHYLPREDNISOLONE [Suspect]
     Active Substance: METHYLPREDNISOLONE
     Indication: Eosinophilic granulomatosis with polyangiitis
     Dosage: TAPERED DOSE
     Route: 065
     Dates: start: 2023, end: 2024
  3. MEPOLIZUMAB [Suspect]
     Active Substance: MEPOLIZUMAB
     Indication: Eosinophilic granulomatosis with polyangiitis
     Route: 065
     Dates: start: 2024
  4. Immunoglobulin [Concomitant]
     Indication: Eosinophilic granulomatosis with polyangiitis
     Dosage: DOSAGE: 2 G/KG
     Route: 042
     Dates: start: 2023, end: 2024
  5. CALCIUM CARBONATE [Concomitant]
     Active Substance: CALCIUM CARBONATE
     Indication: Mineral supplementation
     Route: 065
  6. RITUXIMAB [Suspect]
     Active Substance: RITUXIMAB
     Indication: Eosinophilic granulomatosis with polyangiitis
     Route: 065
     Dates: start: 2023, end: 2024
  7. CHOLECALCIFEROL [Concomitant]
     Active Substance: CHOLECALCIFEROL
     Indication: Vitamin supplementation
     Route: 065

REACTIONS (2)
  - Osteoporosis [Recovering/Resolving]
  - Intervertebral disc compression [Recovering/Resolving]
